FAERS Safety Report 16806202 (Version 1)
Quarter: 2019Q3

REPORT INFORMATION
  Report Type: Spontaneous
  Country: FR (occurrence: FR)
  Receive Date: 20190913
  Receipt Date: 20190913
  Transmission Date: 20191005
  Serious: Yes (Other)
  Sender: FDA-Public Use
  Company Number: FR-009507513-1909FRA002211

PATIENT
  Age: 20 Year
  Sex: Female

DRUGS (1)
  1. NEXPLANON [Suspect]
     Active Substance: ETONOGESTREL
     Dosage: 1 IMPLANT IN HER LEFT ARM
     Route: 059
     Dates: start: 2016

REACTIONS (5)
  - Unintended pregnancy [Recovered/Resolved]
  - Pregnancy with implant contraceptive [Recovered/Resolved]
  - Device deployment issue [Unknown]
  - Abortion induced [Unknown]
  - Complication associated with device [Unknown]

NARRATIVE: CASE EVENT DATE: 2016
